FAERS Safety Report 18814904 (Version 1)
Quarter: 2021Q1

REPORT INFORMATION
  Report Type: Spontaneous
  Country: US (occurrence: US)
  Receive Date: 20210129
  Receipt Date: 20210129
  Transmission Date: 20210419
  Serious: Yes (Other)
  Sender: FDA-Public Use
  Company Number: None

PATIENT
  Age: 82 Year
  Sex: Female

DRUGS (1)
  1. MESALAMINE ER [Suspect]
     Active Substance: MESALAMINE
     Dates: start: 20200901, end: 20200901

REACTIONS (4)
  - Dyspnoea [None]
  - Dizziness [None]
  - Headache [None]
  - Drug hypersensitivity [None]

NARRATIVE: CASE EVENT DATE: 20200901
